FAERS Safety Report 6554960-3 (Version None)
Quarter: 2010Q1

REPORT INFORMATION
  Report Type: 
  Country: None (occurrence: None)
  Receive Date: 20100126
  Receipt Date: 20100126
  Transmission Date: 20100710
  Serious: Yes (Disabling)
  Sender: FDA-Public Use
  Company Number: None

PATIENT
  Age: 5 Year
  Sex: Male
  Weight: 18.5975 kg

DRUGS (1)
  1. SINGULAIR [Suspect]
     Indication: ASTHMA
     Dosage: 4 MG MODULES 1X PO
     Route: 048
     Dates: start: 20091023, end: 20091230

REACTIONS (12)
  - AGGRESSION [None]
  - AGITATION [None]
  - CONVULSION [None]
  - EAR INFECTION [None]
  - HEAD INJURY [None]
  - HYPOPHAGIA [None]
  - LYMPHADENOPATHY [None]
  - POOR QUALITY SLEEP [None]
  - TIC [None]
  - TOURETTE'S DISORDER [None]
  - TREMOR [None]
  - VISION BLURRED [None]
